FAERS Safety Report 15940993 (Version 1)
Quarter: 2019Q1

REPORT INFORMATION
  Report Type: Spontaneous
  Country: US (occurrence: US)
  Receive Date: 20190208
  Receipt Date: 20190208
  Transmission Date: 20190417
  Serious: Yes (Hospitalization, Other)
  Sender: FDA-Public Use
  Company Number: US-009507513-1901USA012175

PATIENT
  Sex: Female

DRUGS (1)
  1. PROVENTIL [Suspect]
     Active Substance: ALBUTEROL
     Dosage: UNK
     Route: 055

REACTIONS (10)
  - Pneumonia [Unknown]
  - Product quality issue [Unknown]
  - Arthritis [Not Recovered/Not Resolved]
  - Chronic obstructive pulmonary disease [Not Recovered/Not Resolved]
  - Rib fracture [Unknown]
  - Confusional state [Unknown]
  - Poor quality device used [Unknown]
  - Skin plaque [Unknown]
  - Agitation [Unknown]
  - Emotional disorder [Unknown]
